FAERS Safety Report 12949279 (Version 1)
Quarter: 2016Q4

REPORT INFORMATION
  Report Type: Spontaneous
  Country: US (occurrence: US)
  Receive Date: 20161117
  Receipt Date: 20161117
  Transmission Date: 20170207
  Serious: No
  Sender: FDA-Public Use
  Company Number: US-PFIZER INC-2016535453

PATIENT
  Age: 82 Year
  Sex: Female
  Weight: 79 kg

DRUGS (1)
  1. ADVIL [Suspect]
     Active Substance: IBUPROFEN
     Indication: SPINAL PAIN
     Dosage: UNK

REACTIONS (1)
  - Drug effect incomplete [Unknown]
